FAERS Safety Report 21882363 (Version 1)
Quarter: 2023Q1

REPORT INFORMATION
  Report Type: Spontaneous
  Country: US (occurrence: US)
  Receive Date: 20230119
  Receipt Date: 20230119
  Transmission Date: 20230418
  Serious: Yes (Hospitalization)
  Sender: FDA-Public Use
  Company Number: US-SA-SAC20230117000848

PATIENT
  Age: 34 Year
  Sex: Male

DRUGS (8)
  1. ELOCTATE [Suspect]
     Active Substance: EFMOROCTOCOG ALFA
     Indication: Factor VIII deficiency
     Dosage: 5000 U, BIW
     Route: 042
     Dates: start: 202110
  2. ELOCTATE [Suspect]
     Active Substance: EFMOROCTOCOG ALFA
     Indication: Factor VIII deficiency
     Dosage: 5000 U, BIW
     Route: 042
     Dates: start: 202110
  3. ELOCTATE [Suspect]
     Active Substance: EFMOROCTOCOG ALFA
     Dosage: 9000 U, BIW (9000 U (8100-9900), TWICE A WEEK ON TUESDAY AND FRIDAY
     Route: 042
  4. ELOCTATE [Suspect]
     Active Substance: EFMOROCTOCOG ALFA
     Dosage: 9000 U, BIW (9000 U (8100-9900), TWICE A WEEK ON TUESDAY AND FRIDAY
     Route: 042
  5. ELOCTATE [Suspect]
     Active Substance: EFMOROCTOCOG ALFA
     Dosage: 1500 U, BIW
     Route: 042
     Dates: start: 202110
  6. ELOCTATE [Suspect]
     Active Substance: EFMOROCTOCOG ALFA
     Dosage: 1500 U, BIW
     Route: 042
     Dates: start: 202110
  7. ELOCTATE [Suspect]
     Active Substance: EFMOROCTOCOG ALFA
     Dosage: 2000 U, BIW
     Route: 042
  8. ELOCTATE [Suspect]
     Active Substance: EFMOROCTOCOG ALFA
     Dosage: 2000 U, BIW
     Route: 042

REACTIONS (2)
  - Haemarthrosis [Not Recovered/Not Resolved]
  - Traumatic haemorrhage [Not Recovered/Not Resolved]
